FAERS Safety Report 9164796 (Version 1)
Quarter: 2013Q1

REPORT INFORMATION
  Report Type: Spontaneous
  Country: US (occurrence: None)
  Receive Date: 20130227
  Receipt Date: 20130227
  Transmission Date: 20140127
  Serious: Yes (Hospitalization)
  Sender: FDA-Public Use
  Company Number: FK201300500

PATIENT
  Age: 49 Year
  Sex: Male
  Weight: 62.7 kg

DRUGS (2)
  1. LEVETIRACETAM [Suspect]
     Indication: PRODUCT USED FOR UNKNOWN INDICATION
     Route: 048
  2. PHENOBARBITAL (PHENOBARBITAL) [Concomitant]

REACTIONS (2)
  - Suicide attempt [None]
  - Overdose [None]
